FAERS Safety Report 21748539 (Version 1)
Quarter: 2022Q4

REPORT INFORMATION
  Report Type: Spontaneous
  Country: US (occurrence: US)
  Receive Date: 20221219
  Receipt Date: 20221219
  Transmission Date: 20230112
  Serious: No
  Sender: FDA-Public Use
  Company Number: US-GALDERMA-US2022017080

PATIENT

DRUGS (5)
  1. PROACTIV MD ADAPALENE ACNE TREATMENT [Suspect]
     Active Substance: ADAPALENE
     Indication: Acne
     Dosage: 1 DOSAGE FORM, BID, TWICE A DAY
     Route: 061
     Dates: start: 20221112, end: 202211
  2. PROACTIV CLEAR SKIN SPF 30 [Concomitant]
     Active Substance: AVOBENZONE\OCTISALATE\OCTOCRYLENE
     Indication: Acne
     Dosage: 1 DOSAGE FORM, BID, TWICE DAILY
     Route: 061
     Dates: start: 20221112, end: 202211
  3. Proactiv MD Ultra Gentle Cleanser [Concomitant]
     Indication: Acne
     Dosage: 1 DOSAGE FORM, BID, TWICE DAILY
     Route: 061
     Dates: start: 20221112, end: 202211
  4. Proactiv MD Ultra Hydrating Moisturizer [Concomitant]
     Indication: Acne
     Dosage: 1 DOSAGE FORM, BID, TWICE DAILY
     Route: 061
     Dates: start: 20221112, end: 202211
  5. PROACTIV BLACKHEAD DISSOLVING [Concomitant]
     Active Substance: SALICYLIC ACID
     Indication: Acne
     Dosage: 1 DOSAGE FORM, BID, TWICE DAILY
     Route: 061
     Dates: start: 20221112, end: 202211

REACTIONS (6)
  - Acne [Not Recovered/Not Resolved]
  - Rash macular [Not Recovered/Not Resolved]
  - Skin burning sensation [Not Recovered/Not Resolved]
  - Erythema [Not Recovered/Not Resolved]
  - Overdose [Recovered/Resolved]
  - Inappropriate schedule of product administration [Recovered/Resolved]

NARRATIVE: CASE EVENT DATE: 20221101
